FAERS Safety Report 5407784-4 (Version None)
Quarter: 2007Q3

REPORT INFORMATION
  Report Type: 
  Country: None (occurrence: None)
  Receive Date: 20070807
  Receipt Date: 20070724
  Transmission Date: 20080115
  Serious: Yes (Hospitalization, Other)
  Sender: FDA-Public Use
  Company Number: FR-SHR-FR-2007-022573

PATIENT
  Age: 38 Year
  Sex: Female
  Weight: 50 kg

DRUGS (1)
  1. MIRENA [Suspect]
     Indication: CONTRACEPTION
     Dosage: 20 A?G/DAY, CONT
     Route: 015
     Dates: start: 20070601, end: 20070606

REACTIONS (5)
  - CHOLELITHIASIS [None]
  - GASTROINTESTINAL OBSTRUCTION [None]
  - GASTROINTESTINAL PERFORATION [None]
  - PROCEDURAL PAIN [None]
  - UTERINE PERFORATION [None]
